FAERS Safety Report 6523353-7 (Version None)
Quarter: 2009Q4

REPORT INFORMATION
  Report Type: 
  Country: None (occurrence: None)
  Receive Date: 20091231
  Receipt Date: 20091223
  Transmission Date: 20100525
  Serious: Yes (Hospitalization)
  Sender: FDA-Public Use
  Company Number: FR-ROCHE-507857

PATIENT
  Sex: Female
  Weight: 74 kg

DRUGS (10)
  1. MYCOPHENOLATE MOFETIL [Suspect]
     Route: 048
     Dates: start: 20060720
  2. MYCOPHENOLATE MOFETIL [Suspect]
     Route: 048
  3. TACROLIMUS [Suspect]
     Route: 048
     Dates: start: 20060720
  4. TACROLIMUS [Suspect]
     Route: 048
  5. LANZOR [Concomitant]
     Dates: start: 20060816
  6. RENITEC [Concomitant]
     Dates: start: 20060810
  7. AERIUS [Concomitant]
     Dates: start: 20060918
  8. INIPOMP [Concomitant]
  9. SUCRALFATE [Concomitant]
     Dosage: TDD REPORTED AS 1 POUCH TID.
  10. TENORMIN [Concomitant]

REACTIONS (2)
  - ANGIOEDEMA [None]
  - BILIARY ANASTOMOSIS COMPLICATION [None]
